FAERS Safety Report 12532088 (Version 1)
Quarter: 2016Q3

REPORT INFORMATION
  Report Type: Report from Study
  Country: US (occurrence: US)
  Receive Date: 20160706
  Receipt Date: 20160706
  Transmission Date: 20161109
  Serious: Yes (Hospitalization, Other)
  Sender: FDA-Public Use
  Company Number: US-ABBVIE-16K-163-1604993-00

PATIENT
  Age: 57 Year
  Sex: Female
  Weight: 38.14 kg

DRUGS (3)
  1. HUMIRA [Suspect]
     Active Substance: ADALIMUMAB
     Indication: COLITIS ULCERATIVE
     Dosage: DAY 1
     Route: 058
     Dates: start: 20160309, end: 20160309
  2. HUMIRA [Suspect]
     Active Substance: ADALIMUMAB
     Route: 058
     Dates: start: 2016
  3. HUMIRA [Suspect]
     Active Substance: ADALIMUMAB
     Dosage: DAY 15
     Route: 058
     Dates: start: 20160324, end: 20160324

REACTIONS (21)
  - Activities of daily living impaired [Unknown]
  - Anxiety [Unknown]
  - Sinusitis [Unknown]
  - Fatigue [Unknown]
  - Anaemia [Unknown]
  - Clostridium difficile infection [Unknown]
  - Alopecia [Unknown]
  - Abnormal faeces [Unknown]
  - Lethargy [Unknown]
  - Malaise [Unknown]
  - Insomnia [Unknown]
  - Decreased appetite [Unknown]
  - Haematochezia [Unknown]
  - Weight decreased [Not Recovered/Not Resolved]
  - Fear [Unknown]
  - Depressed mood [Unknown]
  - Nausea [Unknown]
  - Rectal haemorrhage [Unknown]
  - Frequent bowel movements [Unknown]
  - Urinary tract infection [Unknown]
  - Vomiting [Unknown]

NARRATIVE: CASE EVENT DATE: 2016
